FAERS Safety Report 5751458-7 (Version None)
Quarter: 2008Q2

REPORT INFORMATION
  Report Type: 
  Country: None (occurrence: None)
  Receive Date: 20080527
  Receipt Date: 20080515
  Transmission Date: 20081010
  Serious: Yes (Other)
  Sender: FDA-Public Use
  Company Number: 19348

PATIENT
  Age: 48 Year
  Sex: Female

DRUGS (1)
  1. MITOXANTRONE [Suspect]
     Indication: MULTIPLE SCLEROSIS
     Dosage: 12 MG/M2OTH
     Route: 050

REACTIONS (3)
  - ACUTE PROMYELOCYTIC LEUKAEMIA [None]
  - MARROW HYPERPLASIA [None]
  - PANCYTOPENIA [None]
